FAERS Safety Report 6874203-0 (Version None)
Quarter: 2010Q3

REPORT INFORMATION
  Report Type: 
  Country: None (occurrence: None)
  Receive Date: 20100723
  Receipt Date: 20090624
  Transmission Date: 20110219
  Serious: No
  Sender: FDA-Public Use
  Company Number: US-PFIZER INC-2009210971

PATIENT
  Sex: Female
  Weight: 63.492 kg

DRUGS (3)
  1. CHANTIX [Suspect]
     Indication: SMOKING CESSATION THERAPY
     Dosage: 0.5 MG, UNK
     Dates: start: 20090401, end: 20090430
  2. DILAUDID [Concomitant]
     Indication: PAIN
     Dosage: UNK
  3. PROTONIX [Concomitant]
     Dosage: UNK

REACTIONS (4)
  - HOT FLUSH [None]
  - HYPERHIDROSIS [None]
  - NAUSEA [None]
  - VOMITING [None]
